FAERS Safety Report 19672372 (Version 1)
Quarter: 2021Q3

REPORT INFORMATION
  Report Type: Spontaneous
  Country: US (occurrence: US)
  Receive Date: 20210808
  Receipt Date: 20210808
  Transmission Date: 20211014
  Serious: Yes (Other)
  Sender: FDA-Public Use
  Company Number: US-JNJFOC-20210754874

PATIENT
  Age: 7 Decade
  Sex: Female
  Weight: 55.84 kg

DRUGS (3)
  1. DARATUMUMAB [Suspect]
     Active Substance: DARATUMUMAB
     Indication: HAEMATOLOGICAL MALIGNANCY
     Route: 065
     Dates: start: 202011, end: 202102
  2. DARATUMUMAB [Suspect]
     Active Substance: DARATUMUMAB
     Indication: OVARIAN CANCER
  3. DARATUMUMAB [Suspect]
     Active Substance: DARATUMUMAB
     Indication: BREAST CANCER

REACTIONS (6)
  - Off label use [Unknown]
  - Product use in unapproved indication [Unknown]
  - Suspected product tampering [Unknown]
  - Lung neoplasm malignant [Unknown]
  - Bronchitis [Not Recovered/Not Resolved]
  - Influenza [Recovered/Resolved]
